FAERS Safety Report 9101242 (Version 1)
Quarter: 2013Q1

REPORT INFORMATION
  Report Type: Spontaneous
  Country: US (occurrence: US)
  Receive Date: 20130218
  Receipt Date: 20130218
  Transmission Date: 20140127
  Serious: No
  Sender: FDA-Public Use
  Company Number: US-ASTRAZENECA-2013SE03580

PATIENT
  Age: 66 Year
  Sex: Female
  Weight: 90.7 kg

DRUGS (6)
  1. PLENDIL [Suspect]
     Route: 048
  2. PEPCID [Concomitant]
  3. GLIMEPRIDE [Concomitant]
  4. METFORMIN [Concomitant]
  5. PROAIR [Concomitant]
  6. FLOVENT [Concomitant]

REACTIONS (3)
  - Paranasal sinus hypersecretion [Not Recovered/Not Resolved]
  - Cough [Not Recovered/Not Resolved]
  - Asthenia [Not Recovered/Not Resolved]
